FAERS Safety Report 21646930 (Version 2)
Quarter: 2022Q4

REPORT INFORMATION
  Report Type: Spontaneous
  Country: FR (occurrence: FR)
  Receive Date: 20221127
  Receipt Date: 20221212
  Transmission Date: 20230113
  Serious: Yes (Life-Threatening, Hospitalization)
  Sender: FDA-Public Use
  Company Number: FR-TEVA-2022-FR-2828973

PATIENT
  Age: 2 Month
  Sex: Female

DRUGS (9)
  1. ACEBUTOLOL [Suspect]
     Active Substance: ACEBUTOLOL
     Indication: Hypertension
     Dosage: 10 MG/KG DAILY;
     Route: 048
  2. ACEBUTOLOL [Suspect]
     Active Substance: ACEBUTOLOL
     Indication: Malignant hypertension
  3. AMLODIPINE [Suspect]
     Active Substance: AMLODIPINE BESYLATE
     Indication: Hypertension
     Dosage: .6 MG/KG DAILY;
     Route: 048
  4. AMLODIPINE [Suspect]
     Active Substance: AMLODIPINE BESYLATE
     Indication: Malignant hypertension
  5. NICARDIPINE [Suspect]
     Active Substance: NICARDIPINE
     Indication: Hypertension
     Dosage: 5 MG/KG/MIN
     Route: 042
  6. NICARDIPINE [Suspect]
     Active Substance: NICARDIPINE
     Indication: Malignant hypertension
  7. MINOXIDIL [Suspect]
     Active Substance: MINOXIDIL
     Indication: Hypertension
     Dosage: .2 MG/KG DAILY;
     Route: 065
  8. MINOXIDIL [Suspect]
     Active Substance: MINOXIDIL
     Indication: Malignant hypertension
     Dosage: 1.4 MG/KG DAILY;
     Route: 065
  9. MILRINONE [Concomitant]
     Active Substance: MILRINONE
     Indication: Cardiogenic shock
     Dosage: 0.5 MG/KG/ MIN, ADDITIONAL INFO: ROUTE: {INFUSION}
     Route: 050

REACTIONS (6)
  - Therapy non-responder [Unknown]
  - Pericardial effusion [Recovered/Resolved]
  - Pleural effusion [Recovered/Resolved]
  - Cardiac tamponade [Unknown]
  - Respiratory failure [Unknown]
  - Haemodynamic instability [Unknown]
